FAERS Safety Report 14529466 (Version 1)
Quarter: 2018Q1

REPORT INFORMATION
  Report Type: Spontaneous
  Country: BG (occurrence: BG)
  Receive Date: 20180214
  Receipt Date: 20180214
  Transmission Date: 20180509
  Serious: Yes (Hospitalization, Other)
  Sender: FDA-Public Use
  Company Number: BG-MYLANLABS-16X-022-1265202-00

PATIENT

DRUGS (5)
  1. POTASSIUM CHLORIDE. [Concomitant]
     Active Substance: POTASSIUM CHLORIDE
     Dosage: 3MILLILITERTID
     Route: 048
  2. SOTALOL. [Suspect]
     Active Substance: SOTALOL
     Indication: TACHYCARDIA PAROXYSMAL
     Dosage: UNK
     Route: 064
  3. DIGOXIN. [Concomitant]
     Active Substance: DIGOXIN
     Indication: TACHYCARDIA PAROXYSMAL
     Dosage: UNK
  4. POTASSIUM CHLORIDE. [Concomitant]
     Active Substance: POTASSIUM CHLORIDE
     Indication: TACHYCARDIA PAROXYSMAL
     Dosage: UNK
     Route: 048
  5. LANITOP [Concomitant]
     Active Substance: METILDIGOXIN
     Indication: TACHYCARDIA PAROXYSMAL
     Dosage: UNK
     Route: 048

REACTIONS (3)
  - Tachycardia paroxysmal [Recovered/Resolved]
  - Foetal exposure during pregnancy [Unknown]
  - Low birth weight baby [Unknown]

NARRATIVE: CASE EVENT DATE: 2016
